FAERS Safety Report 16787355 (Version 5)
Quarter: 2020Q2

REPORT INFORMATION
  Report Type: Report from Study
  Country: TR (occurrence: TR)
  Receive Date: 20190909
  Receipt Date: 20200605
  Transmission Date: 20200713
  Serious: Yes (Death, Life-Threatening, Hospitalization)
  Sender: FDA-Public Use
  Company Number: TR-ASTRAZENECA-2019SE35538

PATIENT
  Age: 26298 Day
  Sex: Male

DRUGS (11)
  1. METILPREDNIZOLON SODYUM SUKSINAT [Suspect]
     Active Substance: METHYLPREDNISOLONE SODIUM SUCCINATE
     Indication: MYOCARDITIS
     Route: 042
     Dates: start: 20190301, end: 20190308
  2. METILPREDNIZOLON SODYUM SUKSINAT [Suspect]
     Active Substance: METHYLPREDNISOLONE SODIUM SUCCINATE
     Indication: MYOCARDITIS
     Route: 042
     Dates: start: 20190409, end: 20190416
  3. METILPREDNIZOLON SODYUM SUKSINAT [Suspect]
     Active Substance: METHYLPREDNISOLONE SODIUM SUCCINATE
     Indication: MYOCARDITIS
     Route: 042
     Dates: start: 20190308, end: 20190311
  4. METILPREDNIZOLON SODYUM SUKSINAT [Suspect]
     Active Substance: METHYLPREDNISOLONE SODIUM SUCCINATE
     Indication: MYOCARDITIS
     Route: 042
     Dates: start: 20190319, end: 20190408
  5. BUDEZONID + FORMOTEROL (VENTOFOR-COMBI) [Concomitant]
     Indication: CHRONIC OBSTRUCTIVE PULMONARY DISEASE
     Dosage: 400.0UG AS REQUIRED
     Route: 055
     Dates: start: 2010
  6. DURVALUMAB. [Suspect]
     Active Substance: DURVALUMAB
     Indication: NON-SMALL CELL LUNG CANCER
     Route: 042
     Dates: start: 20181228, end: 20181228
  7. DURVALUMAB. [Suspect]
     Active Substance: DURVALUMAB
     Indication: NON-SMALL CELL LUNG CANCER
     Route: 042
     Dates: start: 20190125, end: 20190125
  8. METILPREDNIZOLON SODYUM SUKSINAT [Suspect]
     Active Substance: METHYLPREDNISOLONE SODIUM SUCCINATE
     Indication: MYOCARDITIS
     Route: 042
     Dates: start: 20190311, end: 20190313
  9. METILPREDNIZOLON SODYUM SUKSINAT [Suspect]
     Active Substance: METHYLPREDNISOLONE SODIUM SUCCINATE
     Indication: MYOCARDITIS
     Route: 042
     Dates: start: 20190314, end: 20190318
  10. DURVALUMAB. [Suspect]
     Active Substance: DURVALUMAB
     Indication: NON-SMALL CELL LUNG CANCER
     Route: 042
     Dates: start: 20190221, end: 20190221
  11. METILPREDNIZOLON SODYUM SUKSINAT [Suspect]
     Active Substance: METHYLPREDNISOLONE SODIUM SUCCINATE
     Indication: MYOCARDITIS
     Route: 042
     Dates: start: 20190417

REACTIONS (4)
  - Sepsis [Fatal]
  - Pneumonia [Recovered/Resolved]
  - Myocarditis [Not Recovered/Not Resolved]
  - Pneumonia [Recovered/Resolved]

NARRATIVE: CASE EVENT DATE: 20190301
